FAERS Safety Report 4765335-1 (Version None)
Quarter: 2005Q3

REPORT INFORMATION
  Report Type: 
  Country: None (occurrence: None)
  Receive Date: 20050909
  Receipt Date: 20050607
  Transmission Date: 20060218
  Serious: Yes (Hospitalization, Disabling)
  Sender: FDA-Public Use
  Company Number: US-MERCK-0506USA01438

PATIENT
  Age: 51 Year
  Sex: Female
  Weight: 99 kg

DRUGS (11)
  1. ASPIRIN [Concomitant]
     Indication: PROPHYLAXIS
     Route: 048
     Dates: start: 20030101
  2. REMICADE [Concomitant]
     Route: 042
  3. AVAPRO [Concomitant]
     Indication: CARDIAC DISORDER
     Route: 065
     Dates: start: 20030101
  4. PRAVACHOL [Concomitant]
     Indication: CARDIAC DISORDER
     Route: 065
     Dates: start: 20030101
  5. VIOXX [Suspect]
     Indication: RHEUMATOID ARTHRITIS
     Route: 048
     Dates: start: 20010702, end: 20040930
  6. PLAVIX [Concomitant]
     Indication: CARDIAC DISORDER
     Route: 065
     Dates: start: 20010101
  7. PREDNISONE [Concomitant]
     Route: 065
  8. SULFASALAZINE [Concomitant]
     Indication: SYSTEMIC LUPUS ERYTHEMATOSUS
     Route: 048
  9. LISINOPRIL [Concomitant]
     Route: 065
  10. AMITRIPTYLINE HYDROCHLORIDE [Concomitant]
     Route: 048
  11. HYDROXYCHLOROQUINE SULFATE [Concomitant]
     Indication: SYSTEMIC LUPUS ERYTHEMATOSUS
     Route: 048

REACTIONS (16)
  - ANGINA PECTORIS [None]
  - CARPAL TUNNEL SYNDROME [None]
  - CHEST WALL PAIN [None]
  - CORONARY ARTERY DISEASE [None]
  - CORONARY ARTERY RESTENOSIS [None]
  - CORONARY ARTERY THROMBOSIS [None]
  - COUGH [None]
  - HYPERTENSION [None]
  - INFECTED CYST [None]
  - PERICARDITIS [None]
  - PLEURITIC PAIN [None]
  - RETROPERITONEAL HAEMORRHAGE [None]
  - SYNCOPE VASOVAGAL [None]
  - TOOTH INFECTION [None]
  - UPPER RESPIRATORY TRACT INFECTION [None]
  - VENTRICULAR HYPERTROPHY [None]
